FAERS Safety Report 5000085-8 (Version None)
Quarter: 2006Q2

REPORT INFORMATION
  Report Type: 
  Country: None (occurrence: None)
  Receive Date: 20060509
  Receipt Date: 20060427
  Transmission Date: 20061013
  Serious: Yes (Hospitalization)
  Sender: FDA-Public Use
  Company Number: MEDI-0004512

PATIENT
  Age: 2 Month
  Weight: 3.94 kg

DRUGS (4)
  1. SYNAGIS [Suspect]
     Indication: ANTIVIRAL PROPHYLAXIS
     Dosage: 60 + 69 + 90MG, 1 IN 30 D, INTRAMUSCULAR
     Route: 030
     Dates: start: 20051213, end: 20051213
  2. SYNAGIS [Suspect]
     Indication: ANTIVIRAL PROPHYLAXIS
     Dosage: 60 + 69 + 90MG, 1 IN 30 D, INTRAMUSCULAR
     Route: 030
     Dates: start: 20060302, end: 20060302
  3. SYNAGIS [Suspect]
     Indication: ANTIVIRAL PROPHYLAXIS
     Dosage: 60 + 69 + 90MG, 1 IN 30 D, INTRAMUSCULAR
     Route: 030
     Dates: start: 20060104
  4. SYNAGIS [Suspect]
     Indication: ANTIVIRAL PROPHYLAXIS
     Dosage: 60 + 69 + 90MG, 1 IN 30 D, INTRAMUSCULAR
     Route: 030
     Dates: start: 20060202

REACTIONS (1)
  - BRONCHIOLITIS [None]
